FAERS Safety Report 8835814 (Version 1)
Quarter: 2012Q4

REPORT INFORMATION
  Report Type: 
  Country: NL (occurrence: NL)
  Receive Date: 20121011
  Receipt Date: 20121011
  Transmission Date: 20130627
  Serious: Yes (Hospitalization)
  Sender: FDA-Public Use
  Company Number: NL-PFIZER INC-2012247241

PATIENT
  Age: 71 Year
  Sex: Female
  Weight: 83.6 kg

DRUGS (8)
  1. GENOTROPIN [Suspect]
     Indication: HYPOPITUITARISM
     Dosage: 0.2 mg, 7/wk
     Route: 058
     Dates: start: 20040921
  2. HYDROCORTISONE [Concomitant]
     Indication: BLOOD CORTICOTROPHIN DECREASED
     Dosage: UNK
     Dates: start: 19760601
  3. LEVOTHYROXINE [Concomitant]
     Indication: BLOOD THYROID STIMULATING HORMONE DECREASED
     Dosage: UNK
     Dates: start: 19760601
  4. LEVOTHYROXINE [Concomitant]
     Indication: PRIMARY HYPOTHYROIDISM
  5. ASCAL CARDIO [Concomitant]
     Indication: PROPHYLAXIS
     Dosage: UNK
     Dates: start: 19930601
  6. MIXTARD [Concomitant]
     Indication: DIABETES MELLITUS
     Dosage: UNK
     Dates: start: 20000501
  7. MIXTARD [Concomitant]
     Indication: TYPE 1 DIABETES MELLITUS
  8. DHEA SULPHATE [Concomitant]
     Indication: BLOOD CORTICOTROPHIN DECREASED
     Dosage: UNK
     Dates: start: 20040921

REACTIONS (1)
  - Limb discomfort [Unknown]
